FAERS Safety Report 10627652 (Version 1)
Quarter: 2014Q4

REPORT INFORMATION
  Report Type: Spontaneous
  Country: US (occurrence: None)
  Receive Date: 20141203
  Receipt Date: 20141203
  Transmission Date: 20150529
  Serious: Yes (Death, Life-Threatening)
  Sender: FDA-Public Use
  Company Number: None

PATIENT
  Age: 85 Year
  Sex: Male
  Weight: 81.65 kg

DRUGS (10)
  1. SPIRIVA [Suspect]
     Active Substance: TIOTROPIUM BROMIDE MONOHYDRATE
     Indication: LUNG DISORDER
     Route: 048
  2. AZOPT [Concomitant]
     Active Substance: BRINZOLAMIDE
  3. ADVAIR HFA [Concomitant]
     Active Substance: FLUTICASONE PROPIONATE\SALMETEROL XINAFOATE
  4. WARFARIN [Concomitant]
     Active Substance: WARFARIN
  5. OMPREZOLE [Concomitant]
  6. DILTIAZEM HYDROCHLORIDE EXTENDED RELEASE [Concomitant]
     Active Substance: DILTIAZEM HYDROCHLORIDE
  7. FINASTERIDE. [Concomitant]
     Active Substance: FINASTERIDE
  8. SENOKOT [Concomitant]
     Active Substance: SENNOSIDES
  9. DULCOLAX [Concomitant]
     Active Substance: BISACODYL OR DOCUSATE SODIUM
  10. AVAPRO [Concomitant]
     Active Substance: IRBESARTAN

REACTIONS (3)
  - Malaise [None]
  - Paralysis [None]
  - Fall [None]

NARRATIVE: CASE EVENT DATE: 20140504
